FAERS Safety Report 18477082 (Version 20)
Quarter: 2021Q3

REPORT INFORMATION
  Report Type: Report from Study
  Country: ES (occurrence: ES)
  Receive Date: 20201107
  Receipt Date: 20210927
  Transmission Date: 20211014
  Serious: Yes (Hospitalization, Other)
  Sender: FDA-Public Use
  Company Number: ES-TAKEDA-2020TUS046935

PATIENT
  Sex: Male

DRUGS (15)
  1. IDURSULFASE [Suspect]
     Active Substance: IDURSULFASE
     Indication: MUCOPOLYSACCHARIDOSIS II
     Dosage: 3 DOSAGE FORM, 1/WEEK
     Route: 065
     Dates: start: 20140114
  2. IDURSULFASE [Suspect]
     Active Substance: IDURSULFASE
     Dosage: 3 DOSAGE FORM, 1/WEEK
     Route: 065
     Dates: start: 20140114
  3. IDURSULFASE [Suspect]
     Active Substance: IDURSULFASE
     Dosage: 2?3 VIALS, 1/WEEK
     Route: 042
     Dates: start: 20170322
  4. IDURSULFASE [Suspect]
     Active Substance: IDURSULFASE
     Dosage: 2?3 VIALS, 1/WEEK
     Route: 042
     Dates: start: 20170322
  5. IDURSULFASE [Suspect]
     Active Substance: IDURSULFASE
     Dosage: 2?3 VIALS, 1/WEEK
     Route: 042
     Dates: start: 20170322
  6. IDURSULFASE [Suspect]
     Active Substance: IDURSULFASE
     Dosage: 1/WEEK
     Route: 065
     Dates: start: 20201015
  7. IDURSULFASE [Suspect]
     Active Substance: IDURSULFASE
     Dosage: 3 DOSAGE FORM, 1/WEEK
     Route: 065
     Dates: start: 20140114
  8. IDURSULFASE [Suspect]
     Active Substance: IDURSULFASE
     Dosage: 2?3 VIALS, 1/WEEK
     Route: 042
     Dates: start: 20170322
  9. CARBAMACEPINA [Concomitant]
     Active Substance: CARBAMAZEPINE
     Indication: PRODUCT USED FOR UNKNOWN INDICATION
     Dosage: 400 MILLIGRAM, BID
     Route: 065
  10. IDURSULFASE [Suspect]
     Active Substance: IDURSULFASE
     Dosage: 2 TO 3 VIALS, 1/WEEK
     Route: 042
     Dates: start: 20170322
  11. STESOLID [Concomitant]
     Active Substance: DIAZEPAM
     Indication: PRODUCT USED FOR UNKNOWN INDICATION
     Dosage: 10 MILLIGRAM
     Route: 065
  12. CARBAMACEPINA [Concomitant]
     Active Substance: CARBAMAZEPINE
     Dosage: 200 MILLIGRAM
     Route: 065
  13. IDURSULFASE [Suspect]
     Active Substance: IDURSULFASE
     Dosage: 2?3 DOSAGE FORM, 1/WEEK
     Route: 042
     Dates: start: 20170322
  14. IDURSULFASE [Suspect]
     Active Substance: IDURSULFASE
     Dosage: 2?3 DOSAGE FORM, 1/WEEK
     Route: 042
     Dates: start: 20170322
  15. KEPPRA [Concomitant]
     Active Substance: LEVETIRACETAM
     Indication: PRODUCT USED FOR UNKNOWN INDICATION
     Dosage: 9.5 MILLILITER, Q2HR
     Route: 065

REACTIONS (12)
  - Ear pain [Not Recovered/Not Resolved]
  - Generalised tonic-clonic seizure [Recovered/Resolved]
  - Ear infection [Recovering/Resolving]
  - Constipation [Recovered/Resolved]
  - Respiratory tract infection [Not Recovered/Not Resolved]
  - Seizure [Recovered/Resolved]
  - Headache [Recovered/Resolved]
  - Cough [Recovering/Resolving]
  - Inappropriate schedule of product administration [Recovered/Resolved]
  - COVID-19 [Recovered/Resolved]
  - Ear haemorrhage [Recovered/Resolved]
  - Bronchitis [Not Recovered/Not Resolved]

NARRATIVE: CASE EVENT DATE: 20201022
